FAERS Safety Report 12796762 (Version 1)
Quarter: 2016Q3

REPORT INFORMATION
  Report Type: Spontaneous
  Country: IL (occurrence: IL)
  Receive Date: 20160929
  Receipt Date: 20160929
  Transmission Date: 20161109
  Serious: Yes (Death, Other)
  Sender: FDA-Public Use
  Company Number: IL-FRESENIUS KABI-FK201607197

PATIENT
  Age: 27 Year
  Sex: Male

DRUGS (12)
  1. AZATHIOPRINE. [Suspect]
     Active Substance: AZATHIOPRINE
     Indication: DERMATOMYOSITIS
  2. PROSTAGLANDINS [Suspect]
     Active Substance: UNSPECIFIED INGREDIENT
     Indication: RAYNAUD^S PHENOMENON
  3. METHOTREXATE (MANUFACTURER UNKNOWN) [Suspect]
     Active Substance: METHOTREXATE
     Indication: DERMATOMYOSITIS
     Route: 065
  4. CYCLOPHOSPHAMIDE (MANUFACTURER UNKNOWN) [Suspect]
     Active Substance: CYCLOPHOSPHAMIDE
     Indication: RAYNAUD^S PHENOMENON
  5. PREDNISONE. [Suspect]
     Active Substance: PREDNISONE
     Indication: RAYNAUD^S PHENOMENON
  6. PROSTAGLANDINS [Suspect]
     Active Substance: UNSPECIFIED INGREDIENT
     Indication: DERMATOMYOSITIS
  7. PREDNISONE. [Suspect]
     Active Substance: PREDNISONE
     Indication: DERMATOMYOSITIS
  8. HYDROXYCHLOROQUINE [Suspect]
     Active Substance: HYDROXYCHLOROQUINE
     Indication: RAYNAUD^S PHENOMENON
  9. METHOTREXATE (MANUFACTURER UNKNOWN) [Suspect]
     Active Substance: METHOTREXATE
     Indication: RAYNAUD^S PHENOMENON
  10. CYCLOPHOSPHAMIDE (MANUFACTURER UNKNOWN) [Suspect]
     Active Substance: CYCLOPHOSPHAMIDE
     Indication: DERMATOMYOSITIS
     Route: 065
  11. AZATHIOPRINE. [Suspect]
     Active Substance: AZATHIOPRINE
     Indication: RAYNAUD^S PHENOMENON
  12. HYDROXYCHLOROQUINE [Suspect]
     Active Substance: HYDROXYCHLOROQUINE
     Indication: DERMATOMYOSITIS

REACTIONS (3)
  - Bursitis [Unknown]
  - Interstitial lung disease [Fatal]
  - Pneumonia [Fatal]
